FAERS Safety Report 15595574 (Version 3)
Quarter: 2019Q1

REPORT INFORMATION
  Report Type: Report from Study
  Country: HU (occurrence: HU)
  Receive Date: 20181107
  Receipt Date: 20190103
  Transmission Date: 20190417
  Serious: Yes (Hospitalization)
  Sender: FDA-Public Use
  Company Number: HU-VELOXIS PHARMACEUTICALS, INC.-2018VELHU1231

PATIENT
  Age: 43 Year
  Sex: Male

DRUGS (6)
  1. ENVARSUS XR [Suspect]
     Active Substance: TACROLIMUS
     Indication: PROPHYLAXIS AGAINST TRANSPLANT REJECTION
     Dosage: 6 MG, QD
     Route: 048
     Dates: start: 20181006, end: 20181029
  2. CERTICAN [Concomitant]
     Active Substance: EVEROLIMUS
     Indication: RENAL TRANSPLANT
     Dosage: 2 MG, BID
     Route: 048
  3. QUAMATEL [Concomitant]
     Active Substance: FAMOTIDINE
     Indication: PROPHYLAXIS AGAINST GASTROINTESTINAL ULCER
     Dosage: 40 MG, QD (MORNING)
     Route: 048
  4. PREDNISOLON                        /00016201/ [Concomitant]
     Active Substance: PREDNISOLONE
     Indication: RENAL TRANSPLANT
     Dosage: 20 MG, QD (MORNING)
     Route: 048
  5. MINIPRESS [Concomitant]
     Active Substance: PRAZOSIN HYDROCHLORIDE
     Indication: HYPERTENSION
     Dosage: 2 MG, BID
     Route: 048
  6. ENVARSUS XR [Suspect]
     Active Substance: TACROLIMUS
     Dosage: 12 MG, QD
     Route: 048
     Dates: start: 20180426

REACTIONS (1)
  - Transplant rejection [Recovering/Resolving]

NARRATIVE: CASE EVENT DATE: 20181025
